FAERS Safety Report 24008174 (Version 1)
Quarter: 2024Q2

REPORT INFORMATION
  Report Type: Spontaneous
  Country: MY (occurrence: MY)
  Receive Date: 20240625
  Receipt Date: 20240625
  Transmission Date: 20240716
  Serious: Yes (Hospitalization, Other)
  Sender: FDA-Public Use
  Company Number: MY-BoehringerIngelheim-2024-BI-034684

PATIENT
  Age: 37 Year
  Sex: Female

DRUGS (7)
  1. TELMISARTAN [Suspect]
     Active Substance: TELMISARTAN
     Indication: Hypertension
  2. intravenous iron Venofer [Concomitant]
     Indication: Drug therapy
     Route: 042
  3. epoetin beta (recormon) [Concomitant]
     Indication: Drug therapy
  4. METHYLDOPA [Concomitant]
     Active Substance: METHYLDOPA
     Indication: Product used for unknown indication
  5. PRAZOSIN [Concomitant]
     Active Substance: PRAZOSIN
     Indication: Hypertension
  6. FELODIPINE [Concomitant]
     Active Substance: FELODIPINE
     Indication: Hypertension
  7. SIMVASTATIN [Concomitant]
     Active Substance: SIMVASTATIN
     Indication: Hypertension

REACTIONS (7)
  - Gestational diabetes [Unknown]
  - Anuria [Unknown]
  - Thrombocytopenia [Unknown]
  - Anaemia [Unknown]
  - Presyncope [Recovered/Resolved]
  - Hypertensive crisis [Recovered/Resolved]
  - Hypervolaemia [Recovered/Resolved]
